FAERS Safety Report 5851923-8 (Version None)
Quarter: 2008Q3

REPORT INFORMATION
  Report Type: 
  Country: None (occurrence: None)
  Receive Date: 20080819
  Receipt Date: 20080509
  Transmission Date: 20090109
  Serious: Yes (Life-Threatening)
  Sender: FDA-Public Use
  Company Number: 2008-182116-NL

PATIENT
  Age: 15 Year
  Sex: Female

DRUGS (2)
  1. ETONOGESTREL [Suspect]
     Indication: CONTRACEPTION
     Dosage: DF; SUBCUTANEOUS
     Route: 058
     Dates: start: 20071120
  2. FLUOXETINE [Concomitant]

REACTIONS (3)
  - MOOD SWINGS [None]
  - SUICIDE ATTEMPT [None]
  - WEIGHT INCREASED [None]
